FAERS Safety Report 7234555-9 (Version None)
Quarter: 2011Q1

REPORT INFORMATION
  Report Type: 
  Country: None (occurrence: None)
  Receive Date: 20110119
  Receipt Date: 20110106
  Transmission Date: 20110831
  Serious: Yes (Hospitalization)
  Sender: FDA-Public Use
  Company Number: JP-BRISTOL-MYERS SQUIBB COMPANY-15480338

PATIENT
  Age: 61 Year
  Sex: Male

DRUGS (5)
  1. SAXAGLIPTIN [Suspect]
     Indication: TYPE 2 DIABETES MELLITUS
     Route: 048
     Dates: start: 20100927, end: 20110105
  2. TELMISARTAN [Concomitant]
     Dates: start: 20101227
  3. FLUVASTATIN SODIUM [Concomitant]
     Dates: start: 20100101
  4. FEXOFENADINE HCL [Concomitant]
     Dates: start: 20101227
  5. VOGLIBOSE [Concomitant]
     Dates: start: 20100405

REACTIONS (1)
  - VIITH NERVE PARALYSIS [None]
